FAERS Safety Report 5256125-4 (Version None)
Quarter: 2007Q1

REPORT INFORMATION
  Report Type: 
  Country: None (occurrence: None)
  Receive Date: 20070306
  Receipt Date: 20070222
  Transmission Date: 20070707
  Serious: Yes (Life-Threatening, Hospitalization)
  Sender: FDA-Public Use
  Company Number: US-JNJFOC-20070101080

PATIENT
  Sex: Male

DRUGS (8)
  1. RISPERDAL [Suspect]
     Indication: SCHIZOPHRENIA, PARANOID TYPE
     Route: 048
  2. ZOLOFT [Concomitant]
     Indication: DEPRESSION
  3. WELLBUTRIN SR [Concomitant]
     Indication: DEPRESSION
  4. COGENTIN [Concomitant]
     Indication: EXTRAPYRAMIDAL DISORDER
  5. REQUIP [Concomitant]
     Indication: RESTLESS LEGS SYNDROME
  6. HALDOL [Concomitant]
     Indication: PARANOIA
  7. SEROQUEL [Concomitant]
     Indication: INSOMNIA
  8. SEROQUEL [Concomitant]
     Indication: PARANOIA

REACTIONS (1)
  - TORSADE DE POINTES [None]
